FAERS Safety Report 21757347 (Version 1)
Quarter: 2022Q4

REPORT INFORMATION
  Report Type: Spontaneous
  Country: US (occurrence: None)
  Receive Date: 20221220
  Receipt Date: 20221220
  Transmission Date: 20230113
  Serious: No
  Sender: FDA-Public Use
  Company Number: 2022A394227

PATIENT
  Age: 61 Year
  Sex: Male
  Weight: 102.1 kg

DRUGS (3)
  1. FARXIGA [Suspect]
     Active Substance: DAPAGLIFLOZIN PROPANEDIOL
     Indication: Chronic kidney disease
     Dosage: 10.0MG ONCE/SINGLE ADMINISTRATION
     Route: 048
     Dates: start: 20220927
  2. FARXIGA [Suspect]
     Active Substance: DAPAGLIFLOZIN PROPANEDIOL
     Indication: Type 2 diabetes mellitus
     Dosage: 10.0MG ONCE/SINGLE ADMINISTRATION
     Route: 048
     Dates: start: 20220927
  3. FARXIGA [Suspect]
     Active Substance: DAPAGLIFLOZIN PROPANEDIOL
     Indication: Cardiac disorder
     Dosage: 10.0MG ONCE/SINGLE ADMINISTRATION
     Route: 048
     Dates: start: 20220927

REACTIONS (1)
  - Dermatitis [Not Recovered/Not Resolved]

NARRATIVE: CASE EVENT DATE: 20221101
